FAERS Safety Report 7446106-4 (Version None)
Quarter: 2011Q2

REPORT INFORMATION
  Report Type: 
  Country: None (occurrence: None)
  Receive Date: 20110429
  Receipt Date: 20110420
  Transmission Date: 20111010
  Serious: Yes (Hospitalization)
  Sender: FDA-Public Use
  Company Number: A0892157A

PATIENT
  Age: 44 Year
  Sex: Male

DRUGS (4)
  1. GLUCOPHAGE [Concomitant]
  2. LIPITOR [Concomitant]
  3. SINGULAIR [Concomitant]
  4. AVANDIA [Suspect]
     Route: 048
     Dates: start: 19990101, end: 20061103

REACTIONS (9)
  - CARDIAC ARREST [None]
  - HEPATIC FAILURE [None]
  - CEREBROVASCULAR ACCIDENT [None]
  - FLUID RETENTION [None]
  - PAIN IN EXTREMITY [None]
  - MYOCARDIAL INFARCTION [None]
  - LIVER INJURY [None]
  - CHEST PAIN [None]
  - ASTHENIA [None]
